FAERS Safety Report 4454981-0 (Version None)
Quarter: 2004Q3

REPORT INFORMATION
  Report Type: 
  Country: None (occurrence: None)
  Receive Date: 20040825
  Receipt Date: 20040517
  Transmission Date: 20050211
  Serious: No
  Sender: FDA-Public Use
  Company Number: 206572

PATIENT
  Age: 34 Year
  Sex: Female

DRUGS (1)
  1. RAPTIVA [Suspect]
     Indication: PSORIASIS
     Dosage: 0.08 ML, SINGLE, SUBCUTANEOUS
     Route: 058
     Dates: start: 20040514

REACTIONS (5)
  - CHILLS [None]
  - EYE REDNESS [None]
  - HEADACHE [None]
  - PAIN IN EXTREMITY [None]
  - PYREXIA [None]
